FAERS Safety Report 9829129 (Version 3)
Quarter: 2014Q1

REPORT INFORMATION
  Report Type: Spontaneous
  Country: US (occurrence: US)
  Receive Date: 20140119
  Receipt Date: 20140226
  Transmission Date: 20141002
  Serious: Yes (Other)
  Sender: FDA-Public Use
  Company Number: US-009507513-1401USA004438

PATIENT
  Age: 81 Year
  Sex: Female

DRUGS (1)
  1. DULERA [Suspect]
     Dosage: 4 PUFFS DAILY (800/20MCG)
     Route: 055
     Dates: start: 20120605

REACTIONS (3)
  - Dyspnoea [Recovered/Resolved]
  - Drug dose omission [Unknown]
  - Product quality issue [Unknown]
